FAERS Safety Report 9538518 (Version 1)
Quarter: 2013Q2

REPORT INFORMATION
  Report Type: Spontaneous
  Country: US (occurrence: None)
  Receive Date: 20130507
  Receipt Date: 20130507
  Transmission Date: 20140414
  Serious: No
  Sender: FDA-Public Use
  Company Number: PHEH2013US002560

PATIENT
  Sex: Female

DRUGS (3)
  1. AFINITOR (RAD) UNKNOWN [Suspect]
     Route: 048
     Dates: start: 201111
  2. XGEVA (DENOSUMAB) [Concomitant]
  3. ANTIDEPRESSANTS (NO INGREDIENTS/SUBSTANCES) [Concomitant]

REACTIONS (1)
  - Stomatitis [None]
